FAERS Safety Report 16723446 (Version 1)
Quarter: 2019Q3

REPORT INFORMATION
  Report Type: Spontaneous
  Country: DE (occurrence: DE)
  Receive Date: 20190821
  Receipt Date: 20190821
  Transmission Date: 20191005
  Serious: Yes (Hospitalization)
  Sender: FDA-Public Use
  Company Number: DE-TEVA-2019-DE-1094138

PATIENT
  Age: 63 Year
  Sex: Male

DRUGS (3)
  1. IBUPROFEN. [Suspect]
     Active Substance: IBUPROFEN
     Dosage: 600 MG, 1-1-1-1
     Route: 065
  2. FORMOTEROL/ACLIDINIUMBROMID [Concomitant]
     Dosage: 12|340 MICROG, 1-0-1-0
     Route: 065
  3. RAMIPRIL. [Concomitant]
     Active Substance: RAMIPRIL
     Dosage: 5 MG, 1-0-1-0
     Route: 065

REACTIONS (3)
  - Headache [Unknown]
  - Epistaxis [Unknown]
  - Hypertensive emergency [Unknown]
